FAERS Safety Report 7753691-1 (Version None)
Quarter: 2011Q3

REPORT INFORMATION
  Report Type: 
  Country: None (occurrence: None)
  Receive Date: 20110915
  Receipt Date: 20110908
  Transmission Date: 20111222
  Serious: Yes (Hospitalization)
  Sender: FDA-Public Use
  Company Number: DE-PFIZER INC-2011210849

PATIENT
  Age: 62 Year
  Sex: Male

DRUGS (14)
  1. PREDNISONE [Suspect]
     Indication: DIFFUSE LARGE B-CELL LYMPHOMA
     Dosage: UNK
     Route: 048
     Dates: start: 20110610, end: 20110817
  2. VINCRISTINE SULFATE [Suspect]
     Indication: DIFFUSE LARGE B-CELL LYMPHOMA
     Dosage: UNK
     Route: 042
     Dates: start: 20110610, end: 20110817
  3. RITUXIMAB [Suspect]
     Indication: DIFFUSE LARGE B-CELL LYMPHOMA
     Dosage: 1060 MG, UNK
     Route: 042
     Dates: start: 20110608, end: 20110817
  4. COTRIM [Concomitant]
     Dosage: UNK
     Dates: start: 20110601
  5. FUROSEMIDE [Concomitant]
     Dosage: UNK
     Dates: start: 20110601
  6. POLYETHYLENE GLYCOL [Concomitant]
     Dosage: UNK
     Dates: start: 20110601
  7. FOLIC ACID [Concomitant]
     Dosage: UNK
     Dates: start: 20110601
  8. ALLOPURINOL [Concomitant]
     Dosage: UNK
     Dates: start: 20110601
  9. ACICLOVIR [Concomitant]
     Dosage: UNK
     Dates: start: 20110601
  10. PANTOPRAZOLE [Concomitant]
     Dosage: UNK
     Dates: start: 20110601
  11. DOXORUBICIN HCL [Suspect]
     Indication: DIFFUSE LARGE B-CELL LYMPHOMA
     Dosage: UNK
     Route: 042
     Dates: start: 20110610, end: 20110817
  12. CYCLOPHOSPHAMIDE [Suspect]
     Indication: DIFFUSE LARGE B-CELL LYMPHOMA
     Dosage: UNK
     Route: 042
     Dates: start: 20110610, end: 20110817
  13. CERTOPARIN SODIUM [Concomitant]
     Dosage: UNK
     Dates: start: 20110601
  14. METOPROLOL SUCCINATE [Concomitant]
     Dosage: UNK
     Dates: start: 20110601

REACTIONS (1)
  - GENERAL PHYSICAL HEALTH DETERIORATION [None]
